FAERS Safety Report 6250796-1 (Version None)
Quarter: 2009Q2

REPORT INFORMATION
  Report Type: 
  Country: None (occurrence: None)
  Receive Date: 20090626
  Receipt Date: 20090625
  Transmission Date: 20091009
  Serious: Yes (Hospitalization)
  Sender: FDA-Public Use
  Company Number: TCI2009A01921

PATIENT
  Age: 52 Year
  Sex: Male

DRUGS (11)
  1. LANSOPRAZOLE [Suspect]
     Indication: GASTRIC ULCER HAEMORRHAGE
     Dosage: 30 MG (30 MG, 1 IN 1 D) INTRAVENOUS
     Route: 042
     Dates: start: 20090521, end: 20090528
  2. TAKEPRON OD TABLETS 15 (LANSOPRAZOLE) [Suspect]
     Indication: GASTRIC ULCER HAEMORRHAGE
     Dosage: 30 MG (30 MG, 1 IN 1 D) PER ORAL
     Route: 048
     Dates: start: 20090529, end: 20090529
  3. SODIUM ALGINATE CALCIUM GLUCONATE INJ [Concomitant]
  4. MAALOX (ALUMINIUM HYDROXIDE/MAGNESIUM HYDROXIDE) [Concomitant]
  5. SELBEX (TEPRENONE) [Concomitant]
  6. LACTEC G (SORBITOL, SODIUM LACTATE, POTASSIUM CHLORIDE, SODIUM CHLORID [Concomitant]
  7. BFLUID (AMINO ACIDS/CARBOHYDRATES/MINERALS/VITAMINS,) [Concomitant]
  8. SOLDEM 3A (SODIUM LACTATE, POTASSIUM CHLORIDE, SODIUM CHLORIDE, CARBOH [Concomitant]
  9. ACTIT (MALTOSE, SODIUM ACETATE, POTASSIUM CHLORIDE, SODIUM CHLORIDE, P [Concomitant]
  10. NEOLAMINE 3B INJ. (PYRIDOXAL PHOSPHATE, THIAMINE DISULFIDE, HYDROXOCOB [Concomitant]
  11. THROMBIN LOCAL SOLUTION [Concomitant]

REACTIONS (2)
  - RENAL FAILURE ACUTE [None]
  - TREATMENT NONCOMPLIANCE [None]
